FAERS Safety Report 5849691-9 (Version None)
Quarter: 2008Q3

REPORT INFORMATION
  Report Type: 
  Country: None (occurrence: None)
  Receive Date: 20080818
  Receipt Date: 20080818
  Transmission Date: 20090109
  Serious: Yes (Other)
  Sender: FDA-Public Use
  Company Number: None

PATIENT
  Age: 5 Year
  Sex: Male
  Weight: 20.4119 kg

DRUGS (1)
  1. CONCERTA [Suspect]
     Indication: ATTENTION DEFICIT/HYPERACTIVITY DISORDER
     Dosage: MORNINGS ONCE PO
     Route: 048
     Dates: start: 20080810, end: 20080817

REACTIONS (4)
  - AGITATION [None]
  - ANGER [None]
  - IRRITABILITY [None]
  - SCREAMING [None]
